FAERS Safety Report 4614946-2 (Version None)
Quarter: 2005Q1

REPORT INFORMATION
  Report Type: 
  Country: None (occurrence: None)
  Receive Date: 20050322
  Receipt Date: 20050308
  Transmission Date: 20050727
  Serious: Yes (Death)
  Sender: FDA-Public Use
  Company Number: NL-JNJFOC-20050302094

PATIENT
  Sex: Male

DRUGS (11)
  1. REMINYL [Suspect]
     Indication: DEMENTIA
     Route: 065
     Dates: start: 20040505
  2. LANOXIN [Interacting]
     Route: 065
  3. LANOXIN [Interacting]
     Indication: DRUG USE FOR UNKNOWN INDICATION
     Route: 065
  4. GLICLAZIDUM [Concomitant]
     Route: 065
  5. GEMFIBROZILUM [Concomitant]
     Route: 065
  6. SIMVASTATIN [Concomitant]
     Route: 065
  7. ACENOCOUMAROLUM [Concomitant]
     Route: 065
  8. TEMAZEPAM [Concomitant]
     Route: 065
  9. HYDROCHLOROTHIAZIDE [Concomitant]
     Route: 065
  10. NIFEDIPINE [Concomitant]
     Route: 065
  11. METOPROLOL TARTRATE [Concomitant]
     Route: 065

REACTIONS (4)
  - BRADYCARDIA [None]
  - CARDIAC ARREST [None]
  - DRUG INTERACTION [None]
  - HEART RATE IRREGULAR [None]
